FAERS Safety Report 24675053 (Version 2)
Quarter: 2025Q4

REPORT INFORMATION
  Report Type: Spontaneous
  Country: US (occurrence: US)
  Receive Date: 20241128
  Receipt Date: 20251031
  Transmission Date: 20260117
  Serious: Yes (Other)
  Sender: TEVA
  Company Number: US-TEVA-VS-3267745

PATIENT
  Age: 51 Year
  Sex: Male

DRUGS (3)
  1. DILTIAZEM [Suspect]
     Active Substance: DILTIAZEM
     Indication: Supraventricular tachycardia
     Dosage: DRIPS
     Route: 065
  2. AMIODARONE [Suspect]
     Active Substance: AMIODARONE
     Indication: Supraventricular tachycardia
     Route: 065
  3. ESMOLOL [Suspect]
     Active Substance: ESMOLOL HYDROCHLORIDE
     Indication: Supraventricular tachycardia
     Dosage: DRIPS
     Route: 065

REACTIONS (5)
  - Sinus bradycardia [Recovering/Resolving]
  - Nodal arrhythmia [Recovered/Resolved]
  - Drug ineffective [Unknown]
  - Ventricular pre-excitation [Recovered/Resolved]
  - Atrioventricular block first degree [Recovering/Resolving]
